FAERS Safety Report 8561102-1 (Version None)
Quarter: 2012Q3

REPORT INFORMATION
  Report Type: 
  Country: None (occurrence: None)
  Receive Date: 20120802
  Receipt Date: 20120510
  Transmission Date: 20120928
  Serious: Yes (Other)
  Sender: FDA-Public Use
  Company Number: US-BRISTOL-MYERS SQUIBB COMPANY-16584310

PATIENT
  Sex: Female

DRUGS (3)
  1. REYATAZ [Suspect]
  2. TRUVADA [Suspect]
  3. NORVIR [Suspect]

REACTIONS (3)
  - VOMITING [None]
  - JAUNDICE [None]
  - PREGNANCY [None]
